FAERS Safety Report 7698789-1 (Version None)
Quarter: 2011Q3

REPORT INFORMATION
  Report Type: 
  Country: None (occurrence: None)
  Receive Date: 20110819
  Receipt Date: 20110810
  Transmission Date: 20111222
  Serious: Yes (Disabling, Other)
  Sender: FDA-Public Use
  Company Number: US-ASTRAZENECA-2010SE40235

PATIENT
  Age: 83 Year
  Sex: Female

DRUGS (7)
  1. GLYBARIDE/METFORMIN [Concomitant]
     Dosage: 5/500 MG
  2. METHYLDOPA [Concomitant]
  3. ASPIRIN [Concomitant]
  4. PENICILLIN [Concomitant]
  5. ARIMIDEX [Suspect]
     Route: 048
  6. CODEINE SULFATE [Concomitant]
  7. PROBENECID [Concomitant]

REACTIONS (6)
  - DEAFNESS [None]
  - INAPPROPRIATE SCHEDULE OF DRUG ADMINISTRATION [None]
  - NASOPHARYNGITIS [None]
  - COUGH [None]
  - DIABETES MELLITUS [None]
  - NEOPLASM MALIGNANT [None]
